FAERS Safety Report 25130140 (Version 1)
Quarter: 2025Q1

REPORT INFORMATION
  Report Type: Spontaneous
  Country: US (occurrence: US)
  Receive Date: 20250327
  Receipt Date: 20250327
  Transmission Date: 20250409
  Serious: Yes (Life-Threatening, Other)
  Sender: PFIZER
  Company Number: US-PFIZER INC-PV202500035894

PATIENT
  Age: 5 Decade
  Weight: 54 kg

DRUGS (7)
  1. MAGNESIUM SULFATE [Suspect]
     Active Substance: MAGNESIUM SULFATE
  2. SODIUM BICARBONATE [Suspect]
     Active Substance: SODIUM BICARBONATE
  3. DEXTROSE [Suspect]
     Active Substance: DEXTROSE MONOHYDRATE
  4. INSULIN NOS [Suspect]
     Active Substance: INSULIN NOS
  5. AMIODARONE [Suspect]
     Active Substance: AMIODARONE
  6. CALCIUM [Suspect]
     Active Substance: CALCIUM
  7. DIGOXIN [Suspect]
     Active Substance: DIGOXIN

REACTIONS (1)
  - Drug ineffective [Unknown]
